FAERS Safety Report 7769088-4 (Version None)
Quarter: 2011Q3

REPORT INFORMATION
  Report Type: 
  Country: None (occurrence: None)
  Receive Date: 20110922
  Receipt Date: 20100217
  Transmission Date: 20111222
  Serious: No
  Sender: FDA-Public Use
  Company Number: US-ASTRAZENECA-2008UW27433

PATIENT
  Age: 49 Year
  Sex: Female
  Weight: 80.7 kg

DRUGS (6)
  1. HYDROCODONE BITARTRATE AND ACETAMINOPHEN [Concomitant]
     Dosage: 7.5 - 75
     Dates: start: 20040701
  2. LORATADINE [Concomitant]
     Dates: start: 20041217
  3. SEROQUEL [Suspect]
     Indication: INSOMNIA
     Route: 048
     Dates: start: 20020401, end: 20040401
  4. AMOXICILLIN [Concomitant]
     Dates: start: 20040922
  5. LOVASTATIN [Concomitant]
     Dates: start: 20050322
  6. SEROQUEL [Suspect]
     Route: 048
     Dates: start: 20040630

REACTIONS (4)
  - FALL [None]
  - TYPE 2 DIABETES MELLITUS [None]
  - CONTUSION [None]
  - LIGAMENT SPRAIN [None]
